FAERS Safety Report 5381380-X (Version None)
Quarter: 2007Q2

REPORT INFORMATION
  Report Type: 
  Country: None (occurrence: None)
  Receive Date: 20070629
  Receipt Date: 20060530
  Transmission Date: 20071010
  Serious: Yes (Hospitalization)
  Sender: FDA-Public Use
  Company Number: 2006070342

PATIENT
  Age: 46 Year
  Sex: Female

DRUGS (6)
  1. ZOLOFT [Suspect]
     Indication: DEPRESSION
  2. ZOLOFT [Suspect]
     Indication: OBSESSIVE-COMPULSIVE DISORDER
  3. NEURONTIN [Suspect]
     Indication: ILL-DEFINED DISORDER
     Dosage: 100 MG,1 IN 1 D
     Dates: start: 20060501
  4. ANAFRANIL [Suspect]
     Indication: DEPRESSION
  5. TRAZODONE HCL [Concomitant]
  6. XANAX [Concomitant]

REACTIONS (8)
  - APATHY [None]
  - DEPRESSED MOOD [None]
  - DRUG INEFFECTIVE [None]
  - EMOTIONAL DISORDER [None]
  - PANIC ATTACK [None]
  - POST-TRAUMATIC STRESS DISORDER [None]
  - WEIGHT DECREASED [None]
  - WEIGHT INCREASED [None]
